FAERS Safety Report 13083485 (Version 1)
Quarter: 2017Q1

REPORT INFORMATION
  Report Type: Spontaneous
  Country: US (occurrence: US)
  Receive Date: 20170104
  Receipt Date: 20170104
  Transmission Date: 20170428
  Serious: No
  Sender: FDA-Public Use
  Company Number: US-LEO PHARMA-245345

PATIENT
  Sex: Male

DRUGS (3)
  1. PICATO [Suspect]
     Active Substance: INGENOL MEBUTATE
     Indication: DRY SKIN
     Route: 061
  2. PICATO [Suspect]
     Active Substance: INGENOL MEBUTATE
     Indication: SKIN EXFOLIATION
  3. PICATO [Suspect]
     Active Substance: INGENOL MEBUTATE
     Indication: SKIN DISCOLOURATION

REACTIONS (3)
  - Product use issue [Unknown]
  - Application site scab [Recovered/Resolved]
  - Application site erythema [Recovered/Resolved]
